FAERS Safety Report 25120274 (Version 1)
Quarter: 2025Q1

REPORT INFORMATION
  Report Type: Spontaneous
  Country: US (occurrence: None)
  Receive Date: 20250325
  Receipt Date: 20250325
  Transmission Date: 20250409
  Serious: No
  Sender: FDA-CTU
  Company Number: None

PATIENT
  Age: 58 Year
  Sex: Female
  Weight: 76.95 kg

DRUGS (1)
  1. LEQVIO [Suspect]
     Active Substance: INCLISIRAN SODIUM
     Route: 058

REACTIONS (3)
  - Injection site bruising [None]
  - Injection site oedema [None]
  - Injection site pain [None]

NARRATIVE: CASE EVENT DATE: 20250321
